FAERS Safety Report 7383716-7 (Version None)
Quarter: 2011Q1

REPORT INFORMATION
  Report Type: 
  Country: None (occurrence: None)
  Receive Date: 20110330
  Receipt Date: 20110323
  Transmission Date: 20110831
  Serious: Yes (Other)
  Sender: FDA-Public Use
  Company Number: US-JNJFOC-20110310112

PATIENT
  Sex: Female
  Weight: 50.8 kg

DRUGS (2)
  1. PRILOSEC [Concomitant]
     Indication: GASTROOESOPHAGEAL REFLUX DISEASE
     Route: 048
  2. LEVAQUIN [Suspect]
     Indication: BRONCHIECTASIS
     Route: 048

REACTIONS (1)
  - FUNGAL INFECTION [None]
